FAERS Safety Report 6590498-5 (Version None)
Quarter: 2010Q1

REPORT INFORMATION
  Report Type: 
  Country: None (occurrence: None)
  Receive Date: 20100219
  Receipt Date: 20100208
  Transmission Date: 20100710
  Serious: Yes (Other)
  Sender: FDA-Public Use
  Company Number: GB-ELI_LILLY_AND_COMPANY-GB200912000817

PATIENT
  Age: 17 Year
  Sex: Male
  Weight: 70 kg

DRUGS (5)
  1. FLUOXETINE [Suspect]
     Indication: OBSESSIVE-COMPULSIVE DISORDER
     Dosage: 40 MG, DAILY (1/D)
     Route: 048
     Dates: start: 19980101
  2. FLUOXETINE [Suspect]
     Dosage: 60 MG, DAILY (1/D)
     Route: 048
  3. PROVIGIL [Concomitant]
     Indication: SOMNOLENCE
     Dosage: 200 MG, DAILY (1/D)
     Route: 048
     Dates: end: 20080501
  4. PROVIGIL [Concomitant]
     Dosage: 400 MG, DAILY (1/D)
     Route: 048
     Dates: start: 20080501
  5. RISPERIDONE [Concomitant]
     Indication: OBSESSIVE-COMPULSIVE DISORDER
     Dosage: 1 MG, UNKNOWN
     Route: 065
     Dates: start: 20000101

REACTIONS (4)
  - DRUG INTERACTION [None]
  - OBSESSIVE-COMPULSIVE DISORDER [None]
  - THERAPEUTIC RESPONSE DECREASED [None]
  - TIC [None]
